FAERS Safety Report 8216860-2 (Version None)
Quarter: 2012Q1

REPORT INFORMATION
  Report Type: 
  Country: None (occurrence: None)
  Receive Date: 20120316
  Receipt Date: 20120310
  Transmission Date: 20120608
  Serious: Yes (Other)
  Sender: FDA-Public Use
  Company Number: US-ASTRAZENECA-2010SE35263

PATIENT
  Age: 69 Year
  Sex: Female
  Weight: 90.7 kg

DRUGS (3)
  1. CRESTOR [Suspect]
     Route: 048
     Dates: start: 20091001
  2. PLAVIX [Concomitant]
     Indication: CARDIAC DISORDER
  3. RENEXAIR [Concomitant]
     Indication: CARDIAC DISORDER

REACTIONS (6)
  - CARDIAC DISORDER [None]
  - FOOT FRACTURE [None]
  - BLOOD CHOLESTEROL INCREASED [None]
  - ARTERIAL OCCLUSIVE DISEASE [None]
  - PAIN [None]
  - BLOOD TRIGLYCERIDES ABNORMAL [None]
